FAERS Safety Report 23696833 (Version 3)
Quarter: 2024Q3

REPORT INFORMATION
  Report Type: Spontaneous
  Country: US (occurrence: US)
  Receive Date: 20240402
  Receipt Date: 20240710
  Transmission Date: 20241016
  Serious: Yes (Other)
  Sender: PFIZER
  Company Number: US-PFIZER INC-202400074934

PATIENT
  Sex: Female

DRUGS (4)
  1. DOXORUBICIN HYDROCHLORIDE [Suspect]
     Active Substance: DOXORUBICIN HYDROCHLORIDE
     Dosage: UNK
     Dates: start: 2023, end: 2023
  2. DACARBAZINE [Suspect]
     Active Substance: DACARBAZINE
     Dosage: UNK
     Route: 065
     Dates: start: 2023, end: 2023
  3. ADCETRIS [Suspect]
     Active Substance: BRENTUXIMAB VEDOTIN
     Dosage: UNK
     Route: 065
     Dates: start: 2023, end: 202312
  4. VINBLASTINE [Suspect]
     Active Substance: VINBLASTINE
     Dosage: UNK
     Route: 065
     Dates: start: 2023, end: 2023

REACTIONS (1)
  - Cardiac failure congestive [Unknown]

NARRATIVE: CASE EVENT DATE: 20230101
